FAERS Safety Report 25159089 (Version 1)
Quarter: 2025Q2

REPORT INFORMATION
  Report Type: Spontaneous
  Country: CA (occurrence: CA)
  Receive Date: 20250404
  Receipt Date: 20250404
  Transmission Date: 20250717
  Serious: Yes (Other)
  Sender: ALEXION PHARMACEUTICALS
  Company Number: CA-AstraZeneca-2020SF10326

PATIENT
  Age: 55 Year

DRUGS (6)
  1. QUETIAPINE FUMARATE [Suspect]
     Active Substance: QUETIAPINE FUMARATE
     Indication: Schizophrenia
  2. ABILIFY [Suspect]
     Active Substance: ARIPIPRAZOLE
     Indication: Schizophrenia
     Route: 065
  3. HALDOL [Suspect]
     Active Substance: HALOPERIDOL
     Indication: Schizophrenia
     Route: 065
  4. OLANZAPINE [Suspect]
     Active Substance: OLANZAPINE
     Indication: Schizophrenia
     Route: 065
  5. PLACEBO [Suspect]
     Active Substance: PLACEBO
     Indication: Product used for unknown indication
     Route: 065
  6. RISPERDAL [Suspect]
     Active Substance: RISPERIDONE
     Indication: Schizophrenia
     Route: 065

REACTIONS (12)
  - Akathisia [Unknown]
  - Hyperprolactinaemia [Unknown]
  - Blood prolactin abnormal [Unknown]
  - Delusion [Unknown]
  - Emotional poverty [Unknown]
  - Extrapyramidal disorder [Unknown]
  - Psychosexual disorder [Unknown]
  - Sexual dysfunction [Unknown]
  - Social avoidant behaviour [Unknown]
  - Suicide attempt [Unknown]
  - Drug ineffective [Unknown]
  - Schizophrenia [Unknown]
